FAERS Safety Report 7751679-8 (Version None)
Quarter: 2011Q3

REPORT INFORMATION
  Report Type: 
  Country: None (occurrence: None)
  Receive Date: 20110914
  Receipt Date: 20110909
  Transmission Date: 20111222
  Serious: Yes (Other)
  Sender: FDA-Public Use
  Company Number: RU-BRISTOL-MYERS SQUIBB COMPANY-16050171

PATIENT
  Age: 40 Year
  Sex: Male

DRUGS (3)
  1. CLOZAPINE [Suspect]
  2. ARIPIPRAZOLE [Suspect]
     Dosage: DOSE INCREASED TO 30MG DAILY
     Dates: start: 20101101
  3. LITHIUM [Suspect]

REACTIONS (4)
  - HALLUCINATION [None]
  - ANXIETY [None]
  - DELUSION [None]
  - SLEEP DISORDER [None]
